FAERS Safety Report 10627259 (Version 1)
Quarter: 2014Q4

REPORT INFORMATION
  Report Type: Report from Study
  Country: KR (occurrence: KR)
  Receive Date: 20141204
  Receipt Date: 20141204
  Transmission Date: 20150529
  Serious: Yes (Death, Other)
  Sender: FDA-Public Use
  Company Number: KR-GLAXOSMITHKLINE-KR2014GSK031023

PATIENT

DRUGS (10)
  1. ETOPOSIDE. [Suspect]
     Active Substance: ETOPOSIDE
     Indication: BRAIN NEOPLASM
     Dosage: 75 MG/M2, UNK
  2. CARBOPLATIN. [Suspect]
     Active Substance: CARBOPLATIN
     Indication: BRAIN NEOPLASM
     Dosage: UNK
  3. CISPLATIN. [Suspect]
     Active Substance: CISPLATIN
     Indication: BRAIN NEOPLASM
     Dosage: 90 MG/M2, UNK
  4. THIOTEPA. [Suspect]
     Active Substance: THIOTEPA
     Indication: BRAIN NEOPLASM
     Dosage: 300 MG/M2, UNK
  5. CYCLOPHOSPHAMIDE. [Suspect]
     Active Substance: CYCLOPHOSPHAMIDE
     Indication: BRAIN NEOPLASM
     Dosage: 1500 MG/M2, UNK
  6. ETOPOSIDE. [Suspect]
     Active Substance: ETOPOSIDE
     Dosage: 250 MG/M2, UNK
  7. VINCRISTINE SULFATE. [Suspect]
     Active Substance: VINCRISTINE SULFATE
     Indication: BRAIN NEOPLASM
     Dosage: UNK
  8. MELPHALAN [Suspect]
     Active Substance: MELPHALAN
     Indication: BRAIN NEOPLASM
     Dosage: 60 MG/M2, UNK
  9. CARBOPLATIN. [Suspect]
     Active Substance: CARBOPLATIN
     Dosage: 500 MG/M2, UNK
  10. IFOSFAMIDE. [Suspect]
     Active Substance: IFOSFAMIDE
     Indication: BRAIN NEOPLASM
     Dosage: 1500 MG/M2, UNK

REACTIONS (1)
  - Sepsis [Fatal]
